FAERS Safety Report 16834174 (Version 1)
Quarter: 2019Q3

REPORT INFORMATION
  Report Type: Spontaneous
  Country: US (occurrence: US)
  Receive Date: 20190920
  Receipt Date: 20190920
  Transmission Date: 20191005
  Serious: No
  Sender: FDA-Public Use
  Company Number: US-UNICHEM PHARMACEUTICALS (USA) INC-UCM201902-000054

PATIENT
  Age: 80 Year
  Sex: Female
  Weight: 99.7 kg

DRUGS (1)
  1. BISOPROLOL FUMARATE. [Suspect]
     Active Substance: BISOPROLOL FUMARATE
     Indication: CARDIAC DISORDER
     Dosage: HALF A TABLET OF 5 MG (APPROX. 2.5 MG) DAILY

REACTIONS (1)
  - Product administration error [Unknown]
